FAERS Safety Report 12778944 (Version 1)
Quarter: 2016Q3

REPORT INFORMATION
  Report Type: Spontaneous
  Country: US (occurrence: US)
  Receive Date: 20160926
  Receipt Date: 20160926
  Transmission Date: 20161109
  Serious: No
  Sender: FDA-Public Use
  Company Number: US-JAZZ-2016-US-011185

PATIENT
  Sex: Male

DRUGS (32)
  1. KLONOPIN [Concomitant]
     Active Substance: CLONAZEPAM
  2. TRILEPTAL [Concomitant]
     Active Substance: OXCARBAZEPINE
  3. PROPRANOLOL [Concomitant]
     Active Substance: PROPRANOLOL\PROPRANOLOL HYDROCHLORIDE
  4. STRATTERA [Concomitant]
     Active Substance: ATOMOXETINE HYDROCHLORIDE
  5. HYDROCODONE/ACETAMINOPHEN [Concomitant]
     Active Substance: ACETAMINOPHEN\HYDROCODONE
  6. ARSENICUM ALBUM [Concomitant]
  7. BACLOFEN. [Concomitant]
     Active Substance: BACLOFEN
  8. VIAGRA [Concomitant]
     Active Substance: SILDENAFIL CITRATE
  9. TYROSINE [Concomitant]
     Active Substance: TYROSINE
  10. PHENOBARBITAL. [Concomitant]
     Active Substance: PHENOBARBITAL
  11. NORCO [Concomitant]
     Active Substance: ACETAMINOPHEN\HYDROCODONE BITARTRATE
  12. KETOROLAC [Concomitant]
     Active Substance: KETOROLAC\KETOROLAC TROMETHAMINE
  13. XYREM [Suspect]
     Active Substance: SODIUM OXYBATE
     Dosage: 2.25 G, BID
     Route: 048
     Dates: start: 201211
  14. STAVZOR [Concomitant]
     Active Substance: VALPROIC ACID
  15. SEROQUEL [Concomitant]
     Active Substance: QUETIAPINE FUMARATE
  16. VALIUM [Concomitant]
     Active Substance: DIAZEPAM
  17. DEPAKOTE [Concomitant]
     Active Substance: DIVALPROEX SODIUM
  18. GABITRIL [Concomitant]
     Active Substance: TIAGABINE HYDROCHLORIDE
  19. XYREM [Suspect]
     Active Substance: SODIUM OXYBATE
     Indication: SLEEP DISORDER
     Dosage: 3 G, BID
     Route: 048
     Dates: start: 200809, end: 2008
  20. ZANAFLEX [Concomitant]
     Active Substance: TIZANIDINE HYDROCHLORIDE
  21. VALERIAN [Concomitant]
     Active Substance: VALERIAN
  22. NEURONTIN [Concomitant]
     Active Substance: GABAPENTIN
  23. FLUMAZENIL. [Concomitant]
     Active Substance: FLUMAZENIL
  24. GLUTAMINE [Concomitant]
     Active Substance: GLUTAMINE
  25. PICAMILON [Concomitant]
  26. VITAMINS [Concomitant]
     Active Substance: VITAMINS
  27. MELATONIN [Concomitant]
     Active Substance: MELATONIN
  28. VISTARIL [Concomitant]
     Active Substance: HYDROXYZINE PAMOATE
  29. DOXEPIN [Concomitant]
     Active Substance: DOXEPIN
  30. LAMICTAL [Concomitant]
     Active Substance: LAMOTRIGINE
  31. MAG [Concomitant]
  32. LIBRIUM [Concomitant]
     Active Substance: CHLORDIAZEPOXIDE HYDROCHLORIDE

REACTIONS (2)
  - Intentional product misuse [Unknown]
  - Expired product administered [Unknown]
